FAERS Safety Report 8190221-7 (Version None)
Quarter: 2012Q1

REPORT INFORMATION
  Report Type: 
  Country: None (occurrence: None)
  Receive Date: 20120221
  Receipt Date: 20111229
  Transmission Date: 20120608
  Serious: No
  Sender: FDA-Public Use
  Company Number: 1000026649

PATIENT
  Age: 55 Year
  Sex: Female

DRUGS (7)
  1. VIIBRYD [Suspect]
     Indication: DEPRESSION
     Dosage: 10 MG (10 MG,1 IN 1 D),ORAL,  20 MG (20 MG, 1IN 1 D(.ORAL
     Route: 048
     Dates: start: 20111229
  2. VIIBRYD [Suspect]
     Indication: DEPRESSION
     Dosage: 10 MG (10 MG,1 IN 1 D),ORAL,  20 MG (20 MG, 1IN 1 D(.ORAL
     Route: 048
     Dates: start: 20111222, end: 20111228
  3. OMEPRAZOLE [Concomitant]
  4. HYTRIN [Concomitant]
  5. SYNTHROID (LEVOTHYROXINE SODIUM)(LEVOTHYROXINE SODIUM) [Concomitant]
  6. AMBIEN [Concomitant]
  7. SIMVASTATIN [Concomitant]

REACTIONS (8)
  - EAR DISCOMFORT [None]
  - FEAR [None]
  - THIRST DECREASED [None]
  - DECREASED APPETITE [None]
  - IMPAIRED WORK ABILITY [None]
  - ASTHENIA [None]
  - UNEVALUABLE EVENT [None]
  - CRYING [None]
